FAERS Safety Report 5001992-2 (Version None)
Quarter: 2006Q2

REPORT INFORMATION
  Report Type: 
  Country: None (occurrence: None)
  Receive Date: 20060515
  Receipt Date: 20051117
  Transmission Date: 20061013
  Serious: Yes (Hospitalization, Disabling)
  Sender: FDA-Public Use
  Company Number: US-MERCK-0511USA03135

PATIENT
  Age: 51 Year
  Sex: Female
  Weight: 84 kg

DRUGS (12)
  1. VIOXX [Suspect]
     Indication: ARTHRITIS
     Route: 048
     Dates: start: 20020501, end: 20031101
  2. VIOXX [Suspect]
     Indication: NECK PAIN
     Route: 048
     Dates: start: 20020501, end: 20031101
  3. PROPOXYPHENE HYDROCHLORIDE [Concomitant]
     Indication: PAIN
     Route: 065
     Dates: start: 20011001, end: 20011201
  4. CEFADROXIL [Concomitant]
     Indication: SYSTEMIC ANTIBACTERIAL THERAPY
     Route: 065
  5. DIFLUCAN [Concomitant]
     Indication: SYSTEMIC ANTIBACTERIAL THERAPY
     Route: 065
  6. NEURONTIN [Concomitant]
     Indication: PAIN
     Route: 065
     Dates: start: 20011101
  7. BIAXIN [Concomitant]
     Route: 065
  8. HYDROCODONE BITARTRATE [Concomitant]
     Indication: PAIN
     Route: 065
     Dates: start: 20020101, end: 20020301
  9. ULTRAM [Concomitant]
     Indication: PAIN
     Route: 065
     Dates: start: 20020301
  10. CIPRO [Concomitant]
     Indication: SYSTEMIC ANTIBACTERIAL THERAPY
     Route: 065
  11. CEDAX [Concomitant]
     Route: 065
  12. KETOPROFEN [Concomitant]
     Indication: PAIN
     Route: 065
     Dates: start: 20030901

REACTIONS (10)
  - BLOOD CHOLESTEROL INCREASED [None]
  - CARDIOMYOPATHY [None]
  - CHEST PAIN [None]
  - CORONARY ARTERY DISEASE [None]
  - HYPERTENSION [None]
  - INJURY [None]
  - JOINT INJURY [None]
  - MYOCARDIAL INFARCTION [None]
  - NAUSEA [None]
  - PANIC DISORDER [None]
